FAERS Safety Report 8826419 (Version 2)
Quarter: 2012Q4

REPORT INFORMATION
  Report Type: 
  Country: IT (occurrence: IT)
  Receive Date: 20121008
  Receipt Date: 20121018
  Transmission Date: 20130627
  Serious: Yes (Death)
  Sender: FDA-Public Use
  Company Number: PHHY2012IT087949

PATIENT
  Age: 42 Year
  Sex: Male

DRUGS (2)
  1. EXJADE [Suspect]
     Indication: IRON OVERLOAD
     Dosage: 2000 mg, daily
     Route: 048
     Dates: start: 20111101
  2. ANTICOAGULANTS [Concomitant]

REACTIONS (1)
  - Sudden death [Fatal]
